FAERS Safety Report 23989702 (Version 1)
Quarter: 2024Q2

REPORT INFORMATION
  Report Type: Report from Study
  Country: US (occurrence: US)
  Receive Date: 20240619
  Receipt Date: 20240619
  Transmission Date: 20240716
  Serious: Yes (Hospitalization, Other)
  Sender: FDA-Public Use
  Company Number: US-ABBVIE-5803843

PATIENT
  Sex: Male

DRUGS (1)
  1. HUMIRA [Suspect]
     Active Substance: ADALIMUMAB
     Indication: Rheumatoid arthritis
     Dosage: FORM STRENGTH: 40 MG, CITRATE FREE
     Route: 058
     Dates: start: 20240412, end: 20240531

REACTIONS (8)
  - Pulmonary oedema [Recovering/Resolving]
  - Fatigue [Recovering/Resolving]
  - White blood cell count increased [Recovering/Resolving]
  - Rash [Unknown]
  - Joint swelling [Recovering/Resolving]
  - Laboratory test abnormal [Recovering/Resolving]
  - Asthenia [Recovering/Resolving]
  - Red blood cell count decreased [Recovering/Resolving]

NARRATIVE: CASE EVENT DATE: 20240101
